FAERS Safety Report 9889738 (Version 4)
Quarter: 2014Q3

REPORT INFORMATION
  Report Type: Spontaneous
  Country: FR (occurrence: FR)
  Receive Date: 20140211
  Receipt Date: 20140715
  Transmission Date: 20150326
  Serious: Yes (Hospitalization, Other)
  Sender: FDA-Public Use
  Company Number: FR-PFIZER INC-2014032746

PATIENT
  Age: 65 Year
  Sex: Male

DRUGS (15)
  1. CYTARABINE. [Suspect]
     Active Substance: CYTARABINE
     Dosage: 370 MG, 1X/DAY
     Route: 041
     Dates: start: 20131127, end: 20131130
  2. AMLOR [Suspect]
     Active Substance: AMLODIPINE BESYLATE
     Dosage: 5 MG, 2X/DAY
     Route: 048
     Dates: start: 20131127, end: 20131203
  3. PRIMPERAN [Suspect]
     Active Substance: METOCLOPRAMIDE HYDROCHLORIDE
     Dosage: 10 MG, SIX TIMES DAILY
     Route: 041
     Dates: start: 20131202, end: 20131215
  4. EMEND [Suspect]
     Active Substance: APREPITANT
     Dosage: 125 MG AND 80 MG, 1X/DAY
     Route: 048
     Dates: start: 20131201, end: 20131204
  5. ZELITREX [Concomitant]
     Active Substance: VALACYCLOVIR HYDROCHLORIDE
     Dosage: 500 MG, 1X/DAY
     Route: 048
     Dates: start: 20131128
  6. METFORMIN [Concomitant]
     Active Substance: METFORMIN HYDROCHLORIDE
     Dosage: 500 MG, 2X/DAY
     Route: 048
  7. SIMVASTATIN. [Concomitant]
     Active Substance: SIMVASTATIN
     Dosage: 40 MG, 1X/DAY
     Route: 048
  8. ETOPOSIDE. [Suspect]
     Active Substance: ETOPOSIDE
     Dosage: 370 MG, 1X/DAY
     Route: 041
     Dates: start: 20131127, end: 20131130
  9. ZOPHREN [Suspect]
     Active Substance: ONDANSETRON
     Dosage: 2 DF, 1X/DAY
     Route: 041
     Dates: start: 20131127, end: 20131204
  10. EMEND [Suspect]
     Active Substance: APREPITANT
     Dosage: 125 MG AND 80 MG, 1X/DAY
     Route: 048
     Dates: start: 20131201, end: 20131204
  11. PREDNISONE. [Suspect]
     Active Substance: PREDNISONE
     Dosage: 40 MG, 1X/DAY
     Route: 048
     Dates: start: 20131127, end: 20131130
  12. RAMIPRIL. [Concomitant]
     Active Substance: RAMIPRIL
     Dosage: 5 MG, 1X/DAY
     Route: 048
  13. ATARAX [Suspect]
     Active Substance: HYDROXYZINE\HYDROXYZINE HYDROCHLORIDE
     Dosage: 25 MG, TWICE DAILY AS NEEDED
     Route: 048
     Dates: start: 20131205, end: 20131220
  14. LEDERFOLINE [Suspect]
     Active Substance: LEUCOVORIN CALCIUM
     Dosage: 25 MG, WEEKLY ON SUNDAYS
     Route: 048
     Dates: start: 20131130, end: 20131222
  15. BACTRIM [Suspect]
     Active Substance: SULFAMETHOXAZOLE\TRIMETHOPRIM
     Dosage: 1 DF, THREE TIMES WEEKLY, ON MONDAYS, WEDNESDAYS AND FRIDAYS
     Route: 048
     Dates: start: 20131128, end: 20131220

REACTIONS (6)
  - Papule [Unknown]
  - Thrombocytopenia [Not Recovered/Not Resolved]
  - Purpura [Not Recovered/Not Resolved]
  - Hyperthermia [Recovered/Resolved]
  - Pyrexia [Unknown]
  - Bone marrow failure [Recovered/Resolved]

NARRATIVE: CASE EVENT DATE: 20131206
